FAERS Safety Report 13801503 (Version 1)
Quarter: 2017Q3

REPORT INFORMATION
  Report Type: Report from Study
  Country: GR (occurrence: GR)
  Receive Date: 20170727
  Receipt Date: 20170727
  Transmission Date: 20171127
  Serious: Yes (Hospitalization)
  Sender: FDA-Public Use
  Company Number: GR-BAYER-2017-139217

PATIENT
  Sex: Female

DRUGS (1)
  1. BETAFERON [Suspect]
     Active Substance: INTERFERON BETA-1B

REACTIONS (3)
  - Maternal exposure during pregnancy [None]
  - Foetal disorder [Recovered/Resolved]
  - Premature baby [None]

NARRATIVE: CASE EVENT DATE: 201704
